FAERS Safety Report 7519056-2 (Version None)
Quarter: 2011Q2

REPORT INFORMATION
  Report Type: 
  Country: None (occurrence: None)
  Receive Date: 20110602
  Receipt Date: 20110523
  Transmission Date: 20111010
  Serious: Yes (Hospitalization)
  Sender: FDA-Public Use
  Company Number: US-ROCHE-658820

PATIENT
  Sex: Male

DRUGS (15)
  1. BELATACEPT [Suspect]
     Route: 042
     Dates: start: 20060530, end: 20060809
  2. VALCYTE [Concomitant]
     Dates: start: 20060531
  3. CARDURA [Concomitant]
     Dates: start: 20060604
  4. MYCOPHENOLATE MEFETIL [Suspect]
     Route: 048
     Dates: start: 20060529, end: 20060814
  5. PREDNISONE [Suspect]
     Route: 048
     Dates: start: 20060601
  6. ASPIRIN [Concomitant]
     Dates: start: 20060530
  7. BACTRIM [Concomitant]
     Dates: start: 20060530
  8. MYCOPHENOLATE MEFETIL [Suspect]
     Route: 048
  9. ALLOPURINOL [Concomitant]
     Dates: start: 20060531
  10. FLUCONAZOLE [Concomitant]
     Dates: start: 20060531
  11. ZEMPLAR [Concomitant]
     Dates: start: 20060531
  12. LEVOXYL [Concomitant]
     Dates: start: 20060531
  13. TOPRAL [Concomitant]
     Dates: start: 20060628
  14. NORVASC [Concomitant]
     Dates: start: 20060602
  15. CALCIUM CARBONATE [Concomitant]
     Dates: start: 20060531

REACTIONS (2)
  - KIDNEY TRANSPLANT REJECTION [None]
  - EPSTEIN-BARR VIRUS ASSOCIATED LYMPHOPROLIFERATIVE DISORDER [None]
